FAERS Safety Report 10584948 (Version 2)
Quarter: 2014Q4

REPORT INFORMATION
  Report Type: Report from Study
  Country: US (occurrence: US)
  Receive Date: 20141114
  Receipt Date: 20141222
  Transmission Date: 20150529
  Serious: Yes (Other)
  Sender: FDA-Public Use
  Company Number: US-JNJFOC-20141106657

PATIENT
  Age: 62 Year
  Sex: Male
  Weight: 87.54 kg

DRUGS (21)
  1. ASPIRIN. [Concomitant]
     Active Substance: ASPIRIN
     Route: 065
  2. BENICAR [Concomitant]
     Active Substance: OLMESARTAN MEDOXOMIL
     Route: 065
  3. ATORVASTATIN [Concomitant]
     Active Substance: ATORVASTATIN
     Route: 065
  4. SIMPONI [Suspect]
     Active Substance: GOLIMUMAB
     Indication: RHEUMATOID ARTHRITIS
     Route: 058
     Dates: start: 2009
  5. METOPROLOL [Concomitant]
     Active Substance: METOPROLOL
     Route: 065
  6. LEVOTHYROXINE SODIUM. [Concomitant]
     Active Substance: LEVOTHYROXINE SODIUM
     Route: 048
  7. NASONEX [Concomitant]
     Active Substance: MOMETASONE FUROATE
     Route: 055
  8. CENTRUM SILVER MULTIVITAMINS [Concomitant]
     Route: 065
  9. ZOLOFT [Concomitant]
     Active Substance: SERTRALINE HYDROCHLORIDE
     Route: 065
  10. METHOTREXATE [Concomitant]
     Active Substance: METHOTREXATE
     Dosage: 0.7 ML EVERY THURSDAY
     Route: 065
  11. ARAVA [Concomitant]
     Active Substance: LEFLUNOMIDE
     Route: 065
  12. AVELOX [Concomitant]
     Active Substance: MOXIFLOXACIN HYDROCHLORIDE
     Route: 065
  13. FOLIC ACID. [Concomitant]
     Active Substance: FOLIC ACID
     Route: 065
  14. NEXIUM [Concomitant]
     Active Substance: ESOMEPRAZOLE MAGNESIUM
     Route: 048
  15. VYTORIN [Concomitant]
     Active Substance: EZETIMIBE\SIMVASTATIN
     Dosage: 10 MG 80 MG
     Route: 065
  16. PREDNISONE. [Concomitant]
     Active Substance: PREDNISONE
     Route: 065
  17. AMBIEN [Concomitant]
     Active Substance: ZOLPIDEM TARTRATE
     Route: 065
  18. FOSAMAX [Concomitant]
     Active Substance: ALENDRONATE SODIUM
     Route: 065
  19. HYDROCODONE [Concomitant]
     Active Substance: HYDROCODONE
     Indication: PAIN
     Dosage: 10 MG/325 MG 1 TABLET EVERY 6 HOURS AS NEEDED
     Route: 065
  20. HYDROXYZINE HYDROCHLORIDE. [Concomitant]
     Active Substance: HYDROXYZINE HYDROCHLORIDE
     Route: 065
  21. CALCIUM [Concomitant]
     Active Substance: CALCIUM
     Dosage: 2 TABLETS 2 TIMES PER DAY
     Route: 065

REACTIONS (10)
  - Rheumatoid arthritis [Recovering/Resolving]
  - Nephrolithiasis [Unknown]
  - Cataract [Unknown]
  - Spinal column stenosis [Unknown]
  - Fall [Unknown]
  - Synovial cyst [Unknown]
  - Streptococcal bacteraemia [Unknown]
  - Osteopenia [Unknown]
  - Sepsis [Unknown]
  - Clavicle fracture [Unknown]

NARRATIVE: CASE EVENT DATE: 20100520
